FAERS Safety Report 8712230 (Version 5)
Quarter: 2013Q3

REPORT INFORMATION
  Report Type: Spontaneous
  Country: BR (occurrence: BR)
  Receive Date: 20120808
  Receipt Date: 20130924
  Transmission Date: 20140515
  Serious: Yes (Other)
  Sender: FDA-Public Use
  Company Number: BR-AMGEN-BRASP2012049043

PATIENT
  Age: 35 Year
  Sex: Female
  Weight: 62 kg

DRUGS (4)
  1. ENBREL [Suspect]
     Indication: RHEUMATOID ARTHRITIS
     Dosage: UNK
     Route: 065
     Dates: start: 201101
  2. ENBREL [Suspect]
     Dosage: 50 MG, 1X/WEEK
     Route: 058
     Dates: start: 201205
  3. CYCLOBENZAPRINE HYDROCHLORIDE [Concomitant]
     Indication: GENERAL PHYSICAL CONDITION
     Dosage: 5 MG, AS NECESSARY
  4. MIOSAN [Concomitant]
     Indication: GENERAL PHYSICAL CONDITION
     Dosage: 5 MG, AS NEEDED

REACTIONS (4)
  - Liver disorder [Unknown]
  - Product quality issue [Unknown]
  - Pain [Unknown]
  - Injection site pain [Unknown]
